FAERS Safety Report 10155857 (Version 1)
Quarter: 2014Q2

REPORT INFORMATION
  Report Type: Report from Study
  Country: US (occurrence: US)
  Receive Date: 20140506
  Receipt Date: 20140506
  Transmission Date: 20141212
  Serious: Yes (Hospitalization)
  Sender: FDA-Public Use
  Company Number: PHHO2014US006502

PATIENT
  Age: 79 Year
  Sex: Male

DRUGS (2)
  1. AFINITOR [Suspect]
     Indication: BLADDER CANCER STAGE 0, WITH CANCER IN SITU
     Dosage: UNK
     Route: 048
     Dates: start: 20140225, end: 20140327
  2. GEMCITABINE [Suspect]
     Indication: BLADDER CANCER STAGE 0, WITH CANCER IN SITU
     Dosage: UNK
     Dates: start: 20140225, end: 20140327

REACTIONS (1)
  - Acute myocardial infarction [Recovered/Resolved]
